FAERS Safety Report 8146942-5 (Version None)
Quarter: 2012Q1

REPORT INFORMATION
  Report Type: 
  Country: None (occurrence: None)
  Receive Date: 20120217
  Receipt Date: 20120208
  Transmission Date: 20120608
  Serious: Yes (Hospitalization, Other)
  Sender: FDA-Public Use
  Company Number: FR-ASTRAZENECA-2012SE08431

PATIENT
  Age: 20 Year
  Sex: Male

DRUGS (6)
  1. RANITIDINE [Concomitant]
  2. MEROPENEM [Concomitant]
  3. OMEPRAZOLE [Suspect]
     Indication: GASTROOESOPHAGEAL REFLUX DISEASE
     Route: 048
     Dates: start: 20060101, end: 20100730
  4. TOBRAMYCIN [Concomitant]
  5. ESOMEPRAZOLE [Suspect]
     Indication: GASTROOESOPHAGEAL REFLUX DISEASE
     Route: 048
     Dates: start: 20100808, end: 20100824
  6. TEICOPLANIN [Concomitant]
     Dates: start: 20100705, end: 20100719

REACTIONS (2)
  - SEPTIC SHOCK [None]
  - AGRANULOCYTOSIS [None]
